FAERS Safety Report 10974118 (Version 1)
Quarter: 2015Q2

REPORT INFORMATION
  Report Type: Spontaneous
  Country: US (occurrence: US)
  Receive Date: 20150401
  Receipt Date: 20150401
  Transmission Date: 20150821
  Serious: Yes (Death, Hospitalization)
  Sender: FDA-Public Use
  Company Number: US-SUN PHARMACEUTICAL INDUSTRIES LTD-2015SUN00914

PATIENT

DRUGS (1)
  1. VENLAFAXINE HYDROCHLORIDE. [Suspect]
     Active Substance: VENLAFAXINE HYDROCHLORIDE
     Indication: PRODUCT USED FOR UNKNOWN INDICATION
     Route: 048

REACTIONS (9)
  - Bradycardia [Fatal]
  - Ventricular fibrillation [Recovered/Resolved]
  - Heart rate increased [Unknown]
  - Cardiac failure [Fatal]
  - Cardiac arrest [Fatal]
  - Overdose [Fatal]
  - Agitation [Unknown]
  - Aphasia [Unknown]
  - Dyskinesia [Unknown]
